FAERS Safety Report 21802068 (Version 1)
Quarter: 2022Q4

REPORT INFORMATION
  Report Type: Report from Study
  Country: US (occurrence: US)
  Receive Date: 20221230
  Receipt Date: 20221230
  Transmission Date: 20230112
  Serious: No
  Sender: FDA-Public Use
  Company Number: US-ACORDA-ACO_172383_2022

PATIENT
  Age: 63 Year
  Sex: Male

DRUGS (7)
  1. INBRIJA [Suspect]
     Active Substance: LEVODOPA
     Indication: Parkinson^s disease
     Dosage: 2 DOSAGE FORM, PRN, (DO NOT EXCEED 5 DOSES IN 1 DAY)
     Dates: start: 20220326
  2. INBRIJA [Suspect]
     Active Substance: LEVODOPA
     Indication: On and off phenomenon
     Dosage: 2 DOSAGE FORM, PRN, (DO NOT EXCEED 5 DOSES IN 1 DAY)
     Dates: start: 20220326
  3. INBRIJA [Suspect]
     Active Substance: LEVODOPA
     Dosage: 2 DOSAGE FORM, PRN, (DO NOT EXCEED 5 DOSES IN 1 DAY)
     Dates: start: 20220326
  4. INBRIJA [Suspect]
     Active Substance: LEVODOPA
     Dosage: 2 DOSAGE FORM, PRN, (DO NOT EXCEED 5 DOSES IN 1 DAY)
     Dates: start: 20220322
  5. RYTARY [Concomitant]
     Active Substance: CARBIDOPA\LEVODOPA
     Indication: Product used for unknown indication
     Dosage: 95/145/195 MILLIGRAM, QID
     Route: 065
  6. RASAGILINE [Concomitant]
     Active Substance: RASAGILINE
     Indication: Product used for unknown indication
     Dosage: 1 MILLIGRAM, QAM
     Route: 065
  7. CARBIDOPA [Concomitant]
     Active Substance: CARBIDOPA
     Indication: Product used for unknown indication
     Dosage: (DISSOLVABLE), 25/100 MILLIGRAM, MIDDLE OF THE NIGHT
     Route: 065

REACTIONS (8)
  - Ill-defined disorder [Not Recovered/Not Resolved]
  - Device failure [Unknown]
  - Device occlusion [Unknown]
  - Device issue [Unknown]
  - Product residue present [Unknown]
  - Device malfunction [Unknown]
  - Wrong technique in device usage process [Unknown]
  - Cough [Not Recovered/Not Resolved]

NARRATIVE: CASE EVENT DATE: 20220301
